FAERS Safety Report 9729753 (Version 1)
Quarter: 2013Q4

REPORT INFORMATION
  Report Type: Spontaneous
  Country: US (occurrence: US)
  Receive Date: 20131204
  Receipt Date: 20131204
  Transmission Date: 20140711
  Serious: No
  Sender: FDA-Public Use
  Company Number: US-GILEAD-2009-0021980

PATIENT
  Sex: Male
  Weight: 93.44 kg

DRUGS (14)
  1. LETAIRIS [Suspect]
     Indication: PULMONARY ARTERIAL HYPERTENSION
     Route: 048
     Dates: start: 20090421
  2. PRIMIDONE [Concomitant]
  3. LEVOTHYROXINE [Concomitant]
  4. ARICEPT [Concomitant]
  5. ACTONEL [Concomitant]
  6. FLORINEF [Concomitant]
  7. SINGULAIR [Concomitant]
  8. VITAMIN D [Concomitant]
  9. TESTOSTERONE GEL [Concomitant]
  10. ASPIRIN [Concomitant]
  11. FISH OIL [Concomitant]
  12. LAMICTAL [Concomitant]
  13. ZENAPAX [Concomitant]
  14. RANITIDINE [Concomitant]

REACTIONS (1)
  - Hypotension [Unknown]
